FAERS Safety Report 6713168-9 (Version None)
Quarter: 2010Q2

REPORT INFORMATION
  Report Type: 
  Country: None (occurrence: None)
  Receive Date: 20100506
  Receipt Date: 20100423
  Transmission Date: 20101027
  Serious: Yes (Hospitalization)
  Sender: FDA-Public Use
  Company Number: PHHY2010US26399

PATIENT
  Sex: Male
  Weight: 104.78 kg

DRUGS (16)
  1. EXJADE [Suspect]
     Indication: IRON METABOLISM DISORDER
     Dosage: 2000 MG, DAILY
     Route: 048
     Dates: start: 20091111
  2. ULTRAM [Concomitant]
  3. VITAMIN B COMPLEX TAB [Concomitant]
  4. MIRAPEX [Concomitant]
  5. VITAMIN E [Concomitant]
  6. COZAAR [Concomitant]
  7. VITAMIN D [Concomitant]
  8. AMBIEN [Concomitant]
  9. DELSYM [Concomitant]
  10. PROTONIX [Concomitant]
  11. LOVAZA [Concomitant]
  12. NORVASC [Concomitant]
  13. WELCHOL [Concomitant]
  14. CALCIUM [Concomitant]
  15. LEXAPRO [Concomitant]
  16. TOPROL-XL [Concomitant]

REACTIONS (2)
  - LEUKAEMIA [None]
  - PNEUMONIA [None]
